FAERS Safety Report 20969434 (Version 2)
Quarter: 2022Q4

REPORT INFORMATION
  Report Type: Spontaneous
  Country: IT (occurrence: IT)
  Receive Date: 20220616
  Receipt Date: 20221025
  Transmission Date: 20230113
  Serious: Yes (Other)
  Sender: FDA-Public Use
  Company Number: None

PATIENT
  Age: 61 Year
  Sex: Male

DRUGS (3)
  1. LORAZEPAM [Suspect]
     Active Substance: LORAZEPAM
     Indication: Product used for unknown indication
     Dosage: IN TOTAL
     Route: 048
     Dates: start: 20220422, end: 20220422
  2. VENLAFAXINE [Suspect]
     Active Substance: VENLAFAXINE HYDROCHLORIDE
     Indication: Product used for unknown indication
     Dosage: IN TOTAL
     Route: 048
     Dates: start: 20220422, end: 20220422
  3. QUETIAPINE FUMARATE [Suspect]
     Active Substance: QUETIAPINE FUMARATE
     Indication: Product used for unknown indication
     Dosage: IN TOTAL
     Route: 048
     Dates: start: 20220422, end: 20220422

REACTIONS (3)
  - Sopor [Recovered/Resolved with Sequelae]
  - Hypotension [Recovered/Resolved with Sequelae]
  - Drug abuse [Recovered/Resolved with Sequelae]

NARRATIVE: CASE EVENT DATE: 20220422
